FAERS Safety Report 4660239-7 (Version None)
Quarter: 2005Q2

REPORT INFORMATION
  Report Type: 
  Country: None (occurrence: None)
  Receive Date: 20050427
  Receipt Date: 20050208
  Transmission Date: 20051028
  Serious: No
  Sender: FDA-Public Use
  Company Number: 211865

PATIENT
  Age: 44 Year
  Sex: Female
  Weight: 88 kg

DRUGS (5)
  1. XOLAIR [Suspect]
     Indication: ASTHMA
     Dosage: 300 MG, Q4W, SUBCUTANEOUS
     Route: 058
     Dates: start: 20040907
  2. CLARINEX [Concomitant]
  3. ADVAIR (FLUTICASONE PROPIONATE, SALMETEROL XINAFOATE) [Concomitant]
  4. SINGULAIR [Concomitant]
  5. ALBUTEROL (ALBUTEROL, ALBUTEROL SULFATE) [Concomitant]

REACTIONS (1)
  - SINUSITIS [None]
